FAERS Safety Report 6481000-7 (Version None)
Quarter: 2009Q4

REPORT INFORMATION
  Report Type: 
  Country: None (occurrence: None)
  Receive Date: 20091208
  Receipt Date: 20091126
  Transmission Date: 20100525
  Serious: Yes (Hospitalization)
  Sender: FDA-Public Use
  Company Number: FR-CELGENEUS-056-C5013-09050447

PATIENT
  Sex: Female
  Weight: 74 kg

DRUGS (10)
  1. CC-5013 [Suspect]
     Indication: MULTIPLE MYELOMA
     Route: 048
     Dates: start: 20090406
  2. CC-5013 [Suspect]
     Route: 048
     Dates: start: 20090504
  3. CC-5013 [Suspect]
     Route: 048
     Dates: start: 20090824
  4. DEXAMETHASONE TAB [Suspect]
     Indication: MULTIPLE MYELOMA
     Route: 065
     Dates: start: 20090406
  5. DEXAMETHASONE TAB [Suspect]
     Route: 065
     Dates: start: 20090504
  6. DEXAMETHASONE TAB [Suspect]
     Route: 065
     Dates: start: 20090824
  7. INNOHEP [Concomitant]
     Indication: THROMBOSIS PROPHYLAXIS
     Route: 058
     Dates: start: 20090406
  8. B BLOQUANT [Concomitant]
     Indication: HYPERTENSION
     Route: 065
  9. ACEBUTOLOL [Concomitant]
     Indication: CARDIAC DISORDER
     Route: 048
     Dates: start: 20090418
  10. AERIUS [Concomitant]
     Route: 048
     Dates: start: 20090410

REACTIONS (1)
  - PYELONEPHRITIS [None]
